FAERS Safety Report 16300361 (Version 1)
Quarter: 2019Q2

REPORT INFORMATION
  Report Type: Spontaneous
  Country: JP (occurrence: JP)
  Receive Date: 20190510
  Receipt Date: 20190510
  Transmission Date: 20190711
  Serious: Yes (Hospitalization, Other)
  Sender: FDA-Public Use
  Company Number: JP-SA-2019SA126846

PATIENT

DRUGS (1)
  1. KEVZARA [Suspect]
     Active Substance: SARILUMAB
     Indication: STILL^S DISEASE
     Dosage: 200 MG
     Route: 058

REACTIONS (1)
  - Infective tenosynovitis [Unknown]

NARRATIVE: CASE EVENT DATE: 2019
